FAERS Safety Report 13007895 (Version 2)
Quarter: 2017Q1

REPORT INFORMATION
  Report Type: Report from Study
  Country: BR (occurrence: BR)
  Receive Date: 20161208
  Receipt Date: 20170106
  Transmission Date: 20170428
  Serious: Yes (Other)
  Sender: FDA-Public Use
  Company Number: BR-BRISTOL-MYERS SQUIBB COMPANY-BMS-2016-100985

PATIENT
  Sex: Female

DRUGS (5)
  1. SIMVASTATIN. [Concomitant]
     Active Substance: SIMVASTATIN
     Indication: PRODUCT USED FOR UNKNOWN INDICATION
     Route: 065
  2. CODEINE [Concomitant]
     Active Substance: CODEINE
     Indication: PRODUCT USED FOR UNKNOWN INDICATION
     Route: 065
  3. ABATACEPT [Suspect]
     Active Substance: ABATACEPT
     Indication: RHEUMATOID ARTHRITIS
     Dosage: 750 MG, QMO
     Route: 042
  4. ABATACEPT [Suspect]
     Active Substance: ABATACEPT
     Indication: PRODUCT USED FOR UNKNOWN INDICATION
     Dosage: 250 MG, QMO
     Route: 042
  5. ATENOLOL. [Concomitant]
     Active Substance: ATENOLOL
     Indication: PRODUCT USED FOR UNKNOWN INDICATION
     Route: 065

REACTIONS (3)
  - Gait disturbance [Unknown]
  - Hip arthroplasty [Recovering/Resolving]
  - Pain [Unknown]
